FAERS Safety Report 8816525 (Version 2)
Quarter: 2012Q4

REPORT INFORMATION
  Report Type: Spontaneous
  Country: US (occurrence: None)
  Receive Date: 20120927
  Receipt Date: 20121002
  Transmission Date: 20130627
  Serious: Yes (Hospitalization, Other)
  Sender: FDA-Public Use
  Company Number: 2012-0900

PATIENT
  Age: 66 Year
  Sex: Female
  Weight: 67.59 kg

DRUGS (41)
  1. CARFILZOMIB [Suspect]
     Indication: MULTIPLE MYELOMA
     Dosage: 9.4286 mg (33 mg, Days 1, 2), Intravenous
     Dates: start: 20110502, end: 20110503
  2. CARFILZOMIB [Suspect]
     Indication: MULTIPLE MYELOMA
     Dosage: 8.381 mg (44 mg, Days 8, 9, 15, 16), Intravenous
     Dates: start: 20110509, end: 20110517
  3. CARFILZOMIB [Suspect]
     Indication: MULTIPLE MYELOMA
     Dosage: 9/2143 mg (43 mg, days 1, 2, 8, 9, 15, 16, every 28 days), Intravenous
     Dates: start: 20110531, end: 20110712
  4. CARFILZOMIB [Suspect]
     Indication: MULTIPLE MYELOMA
     Dosage: 9 mg (43 mg, Days,1, 2, 8, 9, 15, 16, every 28 days), Intravenous
     Dates: start: 20110726, end: 20110726
  5. CARFILZOMIB [Suspect]
     Indication: MULTIPLE MYELOMA
     Dates: start: 20110727, end: 20110727
  6. CARFILZOMIB [Suspect]
     Indication: MULTIPLE MYELOMA
     Dosage: 9 mg (42 mg, Days 1, 2, 8, 9, 15, 16, every 28 days), Intravenous
     Dates: start: 20110801, end: 20111122
  7. CARFILZOMIB [Suspect]
     Indication: MULTIPLE MYELOMA
     Dosage: 8.7857 mg (41 mg, Days 1, 2, 8, 9, 15, 16, every 28 days), Intravenous
     Dates: start: 20120109, end: 20120221
  8. CARFILZOMIB [Suspect]
     Indication: MULTIPLE MYELOMA
     Dosage: 8.7857 mg (41 mg, Days 1, 2, 8, 9, 15, 16, every 28 days), Intravenous
     Dates: start: 20120109, end: 20120221
  9. CARFILZOMIB [Suspect]
     Indication: MULTIPLE MYELOMA
     Dosage: 9 mg (42 mg, Days 1, 2, 15, 16, every 28 days), Intravenous
     Dates: start: 20120305, end: 20120417
  10. CARFILZOMIB [Suspect]
     Indication: MULTIPLE MYELOMA
     Dosage: 9 mg (42 mg, Days, 1, 2, 15, 16, every 28 days), Intravenous
     Dates: start: 20120430, end: 20120515
  11. CARFILZOMIB [Suspect]
     Indication: MULTIPLE MYELOMA
     Dosage: 9 mg (42 mg, Days 1, 2, 15, 16, every 28 days), Intravenous
     Dates: start: 20120611, end: 20120710
  12. CARFILZOMIB [Suspect]
     Indication: MULTIPLE MYELOMA
     Dosage: 9.2143 mg (43 mg, Days 1, 2, 15, 16, every 28 days), intravenous
     Dates: start: 20120723, end: 20120905
  13. LENALIDOMIDE [Suspect]
     Indication: MULTIPLE MYELOMA
     Dosage: 17.8571 (25 mg, Days 2-21, every 28 days), Oral
     Route: 048
     Dates: start: 20110503, end: 20110717
  14. LENALIDOMIDE [Suspect]
     Indication: MULTIPLE MYELOMA
     Dosage: 25 mg (25 mg, Cycle 3 Day 22), Oral
     Route: 048
     Dates: start: 20110718, end: 20110718
  15. LENALIDOMIDE [Suspect]
     Indication: MULTIPLE MYELOMA
     Dosage: 18.75 (25 mg, Days 1-21, every 28 days), Oral
     Route: 048
     Dates: start: 20110727, end: 20111009
  16. LENALIDOMIDE [Suspect]
     Indication: MULTIPLE MYELOMA
     Dosage: 18.75 mg (25 mg, Days 2-22, every 28 days), Oral
     Route: 048
     Dates: start: 20111018, end: 20111107
  17. LENALIDOMIDE [Suspect]
     Indication: MULTIPLE MYELOMA
     Dosage: 18.75 (25 mg,  Days 2-22, every 28 days), Oral
     Route: 048
     Dates: start: 20111115, end: 20111127
  18. LENALIDOMIDE [Suspect]
     Indication: MULTIPLE MYELOMA
     Dosage: 18.75 mg (25 mg, Days 1-21, every 28 days), Oral
     Route: 048
     Dates: start: 20120110, end: 20120130
  19. LENALIDOMIDE [Suspect]
     Indication: MULTIPLE MYELOMA
     Dosage: 18.75 mg (25 mg, Days 1-21, every 28 days), Oral
     Route: 048
     Dates: start: 20120206, end: 20120520
  20. LENALIDOMIDE [Suspect]
     Indication: MULTIPLE MYELOMA
     Route: 048
     Dates: start: 20120604, end: 20120813
  21. DEXAMETHASONE [Suspect]
     Indication: MULTIPLE MYELOMA
     Dosage: 5.7143 mg (40 mg, Days 1, 8, 15, 22, every 28 days)
     Dates: start: 20110502, end: 20111121
  22. DEXAMETHASONE [Suspect]
     Indication: MULTIPLE MYELOMA
     Dosage: 5.7143 mg (40 mg, Days 1, 8, 15, 22, every 28 days)
     Dates: start: 20120109, end: 20120521
  23. DEXAMETHASONE [Suspect]
     Indication: MULTIPLE MYELOMA
     Dosage: 5.7143 mg (40 mg, Days 1, 8, 15, 22, every 28 days)
     Dates: start: 20120611, end: 20120730
  24. DEXAMETHASONE [Suspect]
     Indication: MULTIPLE MYELOMA
     Dosage: 5.7143 mg (40 mg, Days 1, 8, 15, 22, every 28 days)
     Dates: start: 20120806, end: 20120813
  25. ASPIRIN (ACETYLSALICYLIC ACID) (ACETYLSALICYLIC ACID0 [Concomitant]
  26. ATIVAN (LORAZEPAM) (LORAZEPAM) [Concomitant]
  27. CALTRATE (CALCIUM CARBONATE) (TABLET) (CALCIUM CARBONATE) [Concomitant]
  28. CIPROFLOXACIN (CIPROFLOXACIN) (CIPROFLOAXACIN) [Concomitant]
  29. GLYBURIDE (GLIBENCLAMIDE) (GLIBENCLAMIDE) [Concomitant]
  30. LIPITOR (ATORVASTATIN CALCIUM) (ATORVASTATIN CALCIUM) [Concomitant]
  31. MAGNESIUM PLUS PROTEIN (MAGNESIUM) (MAGNESIUM) [Concomitant]
  32. MAGNESIUM SULFATE (MAGNESIUM SULFATE) (MAGNESIUM SULFATE) [Concomitant]
  33. OXYCODONE (OXYCODONE) (OXYCODONE) [Concomitant]
  34. PREVACID (LANSOPRAZOLE) (LANSOPRAZOLE) [Concomitant]
  35. REGULAR INSULIN (INSULIN BOVINE) (INSULIN BOVINE) [Concomitant]
  36. VALTREX (VALACICLOVIR HYDROCHLORIDE) (VALACICLOVIR HYDROCHLORIDE) [Concomitant]
  37. ZOMETA (ZOLEDRONIC ACID) (ZOLEDRONIC ACID) [Concomitant]
  38. NYSTATIN (NYSTATIN) (NYSTATIN) [Concomitant]
  39. K-DUR (POTASSIUM CHLORIDE) (POTASSIUM CHLORIDE) [Concomitant]
  40. TONIC WATER (TAURINE) (TAURINE) [Concomitant]
  41. POTASSIUM (POTASSIUM) (POTASSIUM) [Concomitant]

REACTIONS (5)
  - Dysarthria [None]
  - Dysphagia [None]
  - Abdominal abscess [None]
  - Diverticular perforation [None]
  - Diverticulitis [None]
